FAERS Safety Report 5953388-4 (Version None)
Quarter: 2008Q4

REPORT INFORMATION
  Report Type: 
  Country: None (occurrence: None)
  Receive Date: 20081114
  Receipt Date: 20081104
  Transmission Date: 20090506
  Serious: Yes (Hospitalization)
  Sender: FDA-Public Use
  Company Number: CA-CELGENEUS-028-21880-08110223

PATIENT
  Sex: Female

DRUGS (1)
  1. REVLIMID [Suspect]
     Indication: DRUG USE FOR UNKNOWN INDICATION
     Route: 048
     Dates: start: 20081008, end: 20081016

REACTIONS (3)
  - ARRHYTHMIA [None]
  - DEEP VEIN THROMBOSIS [None]
  - TOXIC SHOCK SYNDROME [None]
